FAERS Safety Report 15094199 (Version 1)
Quarter: 2018Q2

REPORT INFORMATION
  Report Type: Report from Study
  Country: IN (occurrence: IN)
  Receive Date: 20180630
  Receipt Date: 20180630
  Transmission Date: 20180711
  Serious: Yes (Other)
  Sender: FDA-Public Use
  Company Number: IN-UCBSA-2018028318

PATIENT
  Sex: Female

DRUGS (1)
  1. LEVETIRACETAM. [Suspect]
     Active Substance: LEVETIRACETAM
     Indication: EPILEPSY
     Dosage: UNKNOWN DOSE

REACTIONS (6)
  - Pregnancy [Unknown]
  - Gestational hypertension [Unknown]
  - Premature labour [Unknown]
  - Premature rupture of membranes [Unknown]
  - Pre-eclampsia [Unknown]
  - Seizure [Unknown]
